FAERS Safety Report 19831381 (Version 1)
Quarter: 2021Q3

REPORT INFORMATION
  Report Type: Spontaneous
  Country: US (occurrence: US)
  Receive Date: 20210915
  Receipt Date: 20210915
  Transmission Date: 20211014
  Serious: No
  Sender: FDA-Public Use
  Company Number: None

PATIENT
  Age: 47 Year
  Sex: Female
  Weight: 74.25 kg

DRUGS (7)
  1. HYDROXYCHOLORIQUINE [Concomitant]
  2. PREDINISONE 10 MG TABLETS [Concomitant]
     Active Substance: PREDNISONE
  3. 600+D3 [Concomitant]
  4. FOLIC ACID. [Concomitant]
     Active Substance: FOLIC ACID
  5. METHOTREXATE. [Concomitant]
     Active Substance: METHOTREXATE
  6. REGEN?COV [Suspect]
     Active Substance: CASIRIVIMAB\IMDEVIMAB
     Indication: COVID-19
     Dosage: ?          OTHER FREQUENCY:ONE TIME INFUSION;?
     Route: 042
     Dates: start: 20210914, end: 20210914
  7. ZINC. [Concomitant]
     Active Substance: ZINC

REACTIONS (6)
  - Abdominal pain upper [None]
  - Tremor [None]
  - Vomiting [None]
  - Insomnia [None]
  - Hyperhidrosis [None]
  - Pyrexia [None]

NARRATIVE: CASE EVENT DATE: 20210915
